FAERS Safety Report 9866736 (Version 1)
Quarter: 2014Q1

REPORT INFORMATION
  Report Type: Spontaneous
  Country: US (occurrence: US)
  Receive Date: 20140204
  Receipt Date: 20140204
  Transmission Date: 20141002
  Serious: No
  Sender: FDA-Public Use
  Company Number: US-BIOGENIDEC-2014BI009056

PATIENT
  Sex: Female

DRUGS (6)
  1. TECFIDERA [Suspect]
     Indication: MULTIPLE SCLEROSIS
     Route: 048
  2. ACTONEL WITH CALCIUM [Concomitant]
  3. ASPIRIN LOW DOSE [Concomitant]
  4. BACLOFEN [Concomitant]
  5. ESTROGEL [Concomitant]
  6. STOOL SOFTENER [Concomitant]

REACTIONS (1)
  - Constipation [Unknown]
